FAERS Safety Report 18002328 (Version 2)
Quarter: 2020Q3

REPORT INFORMATION
  Report Type: Spontaneous
  Country: FI (occurrence: US)
  Receive Date: 20200710
  Receipt Date: 20200722
  Transmission Date: 20201103
  Serious: No
  Sender: FDA-Public Use
  Company Number: FI-BIOGEN-2020BI00895386

PATIENT
  Sex: Female

DRUGS (2)
  1. QLAIRA [Concomitant]
     Active Substance: DIENOGEST\ESTRADIOL VALERATE
     Indication: CONTRACEPTION
     Dosage: 4 MONTHS AGO SWITCHED TO BIRTH CONTROL PILLS CALLED QLAIRA
     Route: 048
     Dates: start: 202003
  2. TECFIDERA [Suspect]
     Active Substance: DIMETHYL FUMARATE
     Indication: PRODUCT USED FOR UNKNOWN INDICATION
     Route: 065
     Dates: start: 20191001

REACTIONS (1)
  - Maternal exposure during pregnancy [Recovered/Resolved]
